FAERS Safety Report 21001366 (Version 3)
Quarter: 2022Q3

REPORT INFORMATION
  Report Type: Spontaneous
  Country: US (occurrence: US)
  Receive Date: 20220624
  Receipt Date: 20220704
  Transmission Date: 20221026
  Serious: No
  Sender: FDA-Public Use
  Company Number: US-AMGEN-USASP2022105383

PATIENT
  Age: 29 Year
  Sex: Female
  Weight: 99.34 kg

DRUGS (2)
  1. NEULASTA [Suspect]
     Active Substance: PEGFILGRASTIM
     Indication: Neutropenia
     Dosage: 600 MICROGRAM
     Route: 065
     Dates: start: 20220404
  2. NEULASTA [Suspect]
     Active Substance: PEGFILGRASTIM
     Dosage: 600 MICROGRAM
     Route: 065
     Dates: start: 20220404

REACTIONS (1)
  - Unintentional medical device removal [Unknown]

NARRATIVE: CASE EVENT DATE: 20220616
